FAERS Safety Report 5273788-8 (Version None)
Quarter: 2007Q1

REPORT INFORMATION
  Report Type: 
  Country: None (occurrence: None)
  Receive Date: 20070323
  Receipt Date: 20070313
  Transmission Date: 20070707
  Serious: Yes (Hospitalization)
  Sender: FDA-Public Use
  Company Number: FR-PFIZER INC-2007020693

PATIENT
  Age: 88 Year
  Sex: Female

DRUGS (6)
  1. ALDACTONE [Suspect]
     Indication: HYPERTENSIVE CARDIOMYOPATHY
     Route: 048
  2. LASIX [Interacting]
     Indication: HYPERTENSIVE CARDIOMYOPATHY
     Route: 048
  3. STAGID [Concomitant]
     Indication: DIABETES MELLITUS
     Dosage: TEXT:3 DF-FREQ:DAILY
     Route: 048
  4. AMLODIPINE [Concomitant]
     Indication: HYPERTENSIVE CARDIOMYOPATHY
     Dosage: DAILY DOSE:5MG-FREQ:DAILY
     Route: 048
  5. FOZITEC [Concomitant]
     Indication: HYPERTENSIVE CARDIOMYOPATHY
     Dosage: DAILY DOSE:10MG-FREQ:DAILY
     Route: 048
  6. INSULATARD [Concomitant]
     Indication: DIABETES MELLITUS
     Route: 058

REACTIONS (10)
  - ARRHYTHMIA [None]
  - ASTHENIA [None]
  - BUNDLE BRANCH BLOCK LEFT [None]
  - DRUG INTERACTION [None]
  - HEPATOJUGULAR REFLUX [None]
  - HYPONATRAEMIA [None]
  - METABOLIC DISORDER [None]
  - OEDEMA PERIPHERAL [None]
  - PROTEIN TOTAL INCREASED [None]
  - STATUS EPILEPTICUS [None]
